FAERS Safety Report 7070861-9 (Version None)
Quarter: 2010Q4

REPORT INFORMATION
  Report Type: 
  Country: None (occurrence: None)
  Receive Date: 20101029
  Receipt Date: 20101014
  Transmission Date: 20110411
  Serious: Yes (Other)
  Sender: FDA-Public Use
  Company Number: PHHY2010US55790

PATIENT
  Sex: Female

DRUGS (14)
  1. RECLAST [Suspect]
     Dosage: UNK
     Dates: start: 20091201
  2. NEXIUM [Suspect]
  3. LEVOTHYROXINE [Concomitant]
     Dosage: 50 MICROGRAM, TWICE A DAY
  4. AMBIEN [Concomitant]
     Dosage: 5 MG
  5. ZOLOFT [Concomitant]
     Dosage: 100 MG (AS NEEDED)
  6. PREVACID [Concomitant]
  7. MULTI-VITAMINS [Concomitant]
  8. VITAMIN D3 [Concomitant]
  9. IMMUNE GLOBULIN INTRAVENOUS (HUMAN) [Concomitant]
  10. LOVAZA [Concomitant]
  11. FISH OIL [Concomitant]
  12. ASCORBIC ACID [Concomitant]
  13. VITAMIN E [Concomitant]
  14. VITAMIN B5 AND B6 [Concomitant]

REACTIONS (20)
  - APHONIA [None]
  - BACK PAIN [None]
  - BALANCE DISORDER [None]
  - BONE PAIN [None]
  - EAR INFECTION [None]
  - FATIGUE [None]
  - GASTROOESOPHAGEAL REFLUX DISEASE [None]
  - HEADACHE [None]
  - HOT FLUSH [None]
  - INFLUENZA LIKE ILLNESS [None]
  - MALAISE [None]
  - MUSCLE SPASMS [None]
  - NAUSEA [None]
  - NECK PAIN [None]
  - OROPHARYNGEAL PAIN [None]
  - PAIN [None]
  - PYREXIA [None]
  - THYROID DISORDER [None]
  - VISUAL IMPAIRMENT [None]
  - VOMITING [None]
